FAERS Safety Report 5335161-3 (Version None)
Quarter: 2007Q2

REPORT INFORMATION
  Report Type: 
  Country: None (occurrence: None)
  Receive Date: 20070525
  Receipt Date: 20070521
  Transmission Date: 20071010
  Serious: Yes (Death)
  Sender: FDA-Public Use
  Company Number: RU-MERCK-0705RUS00011

PATIENT
  Age: 70 Year
  Sex: Female

DRUGS (7)
  1. PRIMAXIN [Suspect]
     Indication: PNEUMONIA
     Route: 030
     Dates: start: 20060601, end: 20060601
  2. DEXTRAN [Concomitant]
     Indication: PNEUMONIA
     Route: 065
  3. DEXTRAN [Concomitant]
     Indication: CEREBROVASCULAR ACCIDENT
     Route: 065
  4. NADROPARIN [Concomitant]
     Indication: PNEUMONIA
     Route: 065
  5. NADROPARIN [Concomitant]
     Indication: CEREBROVASCULAR ACCIDENT
     Route: 065
  6. GLIATILIN [Concomitant]
     Indication: CEREBROVASCULAR ACCIDENT
     Route: 065
  7. GLIATILIN [Concomitant]
     Indication: PNEUMONIA
     Route: 065

REACTIONS (1)
  - CEREBROVASCULAR ACCIDENT [None]
